FAERS Safety Report 24928421 (Version 3)
Quarter: 2025Q1

REPORT INFORMATION
  Report Type: Spontaneous
  Country: US (occurrence: US)
  Receive Date: 20250205
  Receipt Date: 20250311
  Transmission Date: 20250409
  Serious: Yes (Other)
  Sender: BAYER HEALTHCARE PHARMACEUTICALS INC.
  Company Number: US-BAYER-2025A016409

PATIENT
  Age: 17 Year
  Sex: Male

DRUGS (2)
  1. JIVI [Suspect]
     Active Substance: DAMOCTOCOG ALFA PEGOL
     Indication: Factor VIII deficiency
     Dosage: JIVI INJ 3000 UNITS/INFUSE 3500 UNITS (3150-3850) SLOW IV PUSH TWICE A WEEK AND AS NEEDED FOR BLEEDI
     Route: 042
     Dates: start: 202211
  2. JIVI [Suspect]
     Active Substance: DAMOCTOCOG ALFA PEGOL
     Indication: Factor VIII deficiency
     Route: 042

REACTIONS (3)
  - Traumatic haemorrhage [None]
  - Limb injury [None]
  - Nasopharyngitis [None]

NARRATIVE: CASE EVENT DATE: 20250115
